FAERS Safety Report 6819206-7 (Version None)
Quarter: 2010Q2

REPORT INFORMATION
  Report Type: 
  Country: None (occurrence: None)
  Receive Date: 20100630
  Receipt Date: 20100623
  Transmission Date: 20101027
  Serious: Yes (Disabling, Other)
  Sender: FDA-Public Use
  Company Number: CRC-10-095

PATIENT
  Age: 57 Year
  Sex: Male
  Weight: 132.4503 kg

DRUGS (4)
  1. PHENYTOIN SODIUM [Suspect]
     Indication: CONVULSION PROPHYLAXIS
     Dosage: TWO CAPSULES TWICE DAILY
     Dates: start: 20100505, end: 20100612
  2. DIGOXIN [Concomitant]
  3. COREG [Concomitant]
  4. RANEXA [Concomitant]

REACTIONS (4)
  - ACTIVITIES OF DAILY LIVING IMPAIRED [None]
  - HYPOAESTHESIA [None]
  - HYPOAESTHESIA FACIAL [None]
  - PARAESTHESIA [None]
